FAERS Safety Report 9687010 (Version 2)
Quarter: 2013Q4

REPORT INFORMATION
  Report Type: Spontaneous
  Country: ES (occurrence: ES)
  Receive Date: 20131113
  Receipt Date: 20131119
  Transmission Date: 20140711
  Serious: Yes (Hospitalization)
  Sender: FDA-Public Use
  Company Number: PHHY2013ES128192

PATIENT
  Sex: Male

DRUGS (1)
  1. VALPROIC ACID [Suspect]
     Dosage: MATERNAL DOSE:1200 MG, PER DAY
     Route: 064

REACTIONS (17)
  - Cyanosis central [Unknown]
  - Ecchymosis [Unknown]
  - Cardiac murmur [Unknown]
  - Tachypnoea [Recovering/Resolving]
  - Breath sounds abnormal [Recovering/Resolving]
  - Umbilical cord haemorrhage [Unknown]
  - Petechiae [Unknown]
  - Hypoglycaemia [Unknown]
  - Hypofibrinogenaemia [Recovering/Resolving]
  - Coagulation disorder neonatal [Recovering/Resolving]
  - Hypertonia neonatal [Recovering/Resolving]
  - Enteral feeding intolerance [Recovering/Resolving]
  - Vomiting neonatal [Recovering/Resolving]
  - Irritability [Recovering/Resolving]
  - Blood pressure decreased [Recovering/Resolving]
  - Drug withdrawal syndrome [Unknown]
  - Foetal exposure during pregnancy [Unknown]
